FAERS Safety Report 4881900-5 (Version None)
Quarter: 2006Q1

REPORT INFORMATION
  Report Type: 
  Country: None (occurrence: None)
  Receive Date: 20060112
  Receipt Date: 20051229
  Transmission Date: 20060701
  Serious: Yes (Death)
  Sender: FDA-Public Use
  Company Number: 2005-136328-NL

PATIENT
  Age: 56 Year
  Sex: Male

DRUGS (1)
  1. VECURONIUM BROMIDE [Suspect]
     Dosage: 0.1 MG/KG ONCE/0.06 MG/KG ONCE/0.2 MG/KG ONCE
     Route: 042

REACTIONS (4)
  - HEPATIC FUNCTION ABNORMAL [None]
  - METABOLIC ACIDOSIS [None]
  - NEUROMUSCULAR BLOCK PROLONGED [None]
  - RENAL DISORDER [None]
